FAERS Safety Report 12774600 (Version 2)
Quarter: 2016Q4

REPORT INFORMATION
  Report Type: Spontaneous
  Country: GB (occurrence: GB)
  Receive Date: 20160923
  Receipt Date: 20161020
  Transmission Date: 20170207
  Serious: Yes (Other)
  Sender: FDA-Public Use
  Company Number: GB-009507513-1609GBR007140

PATIENT
  Sex: Female

DRUGS (1)
  1. ETONOGESTREL IMPLANT- UNKNOWN [Suspect]
     Active Substance: ETONOGESTREL
     Indication: CONTRACEPTION
     Dosage: A CONTRACEPTIVE IMPLANTED
     Route: 059
     Dates: start: 201605

REACTIONS (2)
  - Migration of implanted drug [Unknown]
  - Device embolisation [Unknown]

NARRATIVE: CASE EVENT DATE: 2016
